FAERS Safety Report 25045845 (Version 1)
Quarter: 2025Q1

REPORT INFORMATION
  Report Type: Spontaneous
  Country: US (occurrence: US)
  Receive Date: 20250306
  Receipt Date: 20250306
  Transmission Date: 20250408
  Serious: Yes (Other)
  Sender: MYLAN
  Company Number: US-MYLANLABS-2025M1017810

PATIENT
  Age: 64 Year
  Sex: Male

DRUGS (6)
  1. ACETAZOLAMIDE [Suspect]
     Active Substance: ACETAZOLAMIDE
     Indication: Central serous chorioretinopathy
  2. SPIRONOLACTONE [Suspect]
     Active Substance: SPIRONOLACTONE
     Indication: Central serous chorioretinopathy
     Dosage: 25 MILLIGRAM, BID
  3. AFLIBERCEPT [Concomitant]
     Active Substance: AFLIBERCEPT
     Indication: Central serous chorioretinopathy
  4. METHOTREXATE [Concomitant]
     Active Substance: METHOTREXATE
     Indication: Central serous chorioretinopathy
     Dosage: 20 MILLIGRAM, QW
  5. MYCOPHENOLIC ACID [Concomitant]
     Active Substance: MYCOPHENOLIC ACID
     Indication: Central serous chorioretinopathy
     Dosage: 1000 MILLIGRAM, BID
  6. ADALIMUMAB [Concomitant]
     Active Substance: ADALIMUMAB
     Indication: Central serous chorioretinopathy
     Dosage: 40 MILLIGRAM, BIWEEKLY

REACTIONS (2)
  - Treatment failure [Unknown]
  - Off label use [Unknown]
